FAERS Safety Report 7362122-5 (Version None)
Quarter: 2011Q1

REPORT INFORMATION
  Report Type: 
  Country: None (occurrence: None)
  Receive Date: 20110318
  Receipt Date: 20110311
  Transmission Date: 20110831
  Serious: Yes (Other)
  Sender: FDA-Public Use
  Company Number: US-PFIZER INC-2007036629

PATIENT
  Sex: Male

DRUGS (1)
  1. NEURONTIN [Suspect]
     Indication: BACK PAIN
     Dosage: UNK

REACTIONS (10)
  - THINKING ABNORMAL [None]
  - CEREBROVASCULAR ACCIDENT [None]
  - LOSS OF CONTROL OF LEGS [None]
  - DRUG INEFFECTIVE FOR UNAPPROVED INDICATION [None]
  - AMNESIA [None]
  - ANXIETY [None]
  - DEPRESSION [None]
  - WEIGHT INCREASED [None]
  - SUICIDAL IDEATION [None]
  - PHARYNGITIS STREPTOCOCCAL [None]
